FAERS Safety Report 5261833-5 (Version None)
Quarter: 2007Q1

REPORT INFORMATION
  Report Type: 
  Country: None (occurrence: None)
  Receive Date: 20070310
  Receipt Date: 20070301
  Transmission Date: 20070707
  Serious: Yes (Hospitalization)
  Sender: FDA-Public Use
  Company Number: PHHO2006US12909

PATIENT
  Age: 55 Year
  Sex: Female
  Weight: 49 kg

DRUGS (9)
  1. CERTICAN [Suspect]
     Indication: RENAL TRANSPLANT
     Dosage: 1.5 MG, BID
     Route: 048
     Dates: start: 20060214
  2. CERTICAN [Suspect]
     Dosage: 2 MG, BID
     Route: 048
     Dates: end: 20060718
  3. NEORAL [Suspect]
     Indication: RENAL TRANSPLANT
     Dosage: 75 MG, BID
     Route: 048
  4. NEORAL [Suspect]
     Dosage: 100 MG, BID
     Route: 048
     Dates: end: 20060719
  5. NEORAL [Suspect]
     Dosage: 50 MG / DAY
     Route: 048
     Dates: start: 20060720, end: 20060721
  6. NEORAL [Suspect]
     Dosage: 125 MG, BID
     Route: 048
  7. NEORAL [Suspect]
     Dosage: 75 MG, BID
     Route: 048
     Dates: start: 20060214
  8. PREDNISONE [Concomitant]
     Indication: RENAL TRANSPLANT
     Dosage: 10 MG / DAY
     Route: 048
  9. VALCYTE [Concomitant]

REACTIONS (7)
  - BLOOD CREATININE INCREASED [None]
  - CYTOMEGALOVIRUS INFECTION [None]
  - HAEMATOCRIT DECREASED [None]
  - HAEMATURIA [None]
  - HAEMOGLOBIN DECREASED [None]
  - KIDNEY TRANSPLANT REJECTION [None]
  - THROMBOCYTOPENIA [None]
